FAERS Safety Report 23014198 (Version 1)
Quarter: 2023Q4

REPORT INFORMATION
  Report Type: Spontaneous
  Country: HR (occurrence: HR)
  Receive Date: 20231002
  Receipt Date: 20231002
  Transmission Date: 20240109
  Serious: Yes (Other)
  Sender: FDA-Public Use
  Company Number: None

PATIENT
  Age: 3 Year
  Sex: Female

DRUGS (6)
  1. CLONAZEPAM [Suspect]
     Active Substance: CLONAZEPAM
     Route: 048
     Dates: start: 20230727, end: 20230727
  2. CLOBAZAM [Suspect]
     Active Substance: CLOBAZAM
     Dosage: DAILY DOSE: 10 MILLIGRAM
     Route: 048
     Dates: start: 20230727, end: 20230727
  3. MELATONIN [Suspect]
     Active Substance: MELATONIN
     Route: 048
     Dates: start: 20230727, end: 20230727
  4. TOPAMAX [Suspect]
     Active Substance: TOPIRAMATE
     Route: 048
     Dates: start: 20230727, end: 20230727
  5. KEPPRA [Suspect]
     Active Substance: LEVETIRACETAM
     Indication: Epilepsy
     Dosage: DAILY DOSE: 5 MILLIGRAM
     Route: 048
     Dates: start: 20230727, end: 20230727
  6. KEPPRA [Suspect]
     Active Substance: LEVETIRACETAM
     Indication: Epilepsy
     Dosage: USUAL DOSE?DAILY DOSE: 1.5 MILLIGRAM

REACTIONS (3)
  - Epilepsy [Unknown]
  - Accidental exposure to product by child [Unknown]
  - Somnolence [Unknown]

NARRATIVE: CASE EVENT DATE: 20230727
